FAERS Safety Report 7758430-6 (Version None)
Quarter: 2011Q3

REPORT INFORMATION
  Report Type: 
  Country: None (occurrence: None)
  Receive Date: 20110919
  Receipt Date: 20110909
  Transmission Date: 20111222
  Serious: Yes (Death, Hospitalization, Other)
  Sender: FDA-Public Use
  Company Number: AU-GENZYME-THYM-1002108

PATIENT
  Sex: Male
  Weight: 110 kg

DRUGS (26)
  1. ZOPLICONE [Concomitant]
     Indication: INSOMNIA
     Dosage: UNK
     Dates: start: 20101109
  2. FOLIC ACID [Concomitant]
     Indication: VITAMIN SUPPLEMENTATION
     Dosage: 5 MG, QD
     Route: 048
     Dates: start: 20110127
  3. PIPERACILLIN AND TAZOBACTAM [Concomitant]
     Indication: ANTI-INFECTIVE THERAPY
     Dosage: 4.5 G, TID
     Route: 042
     Dates: start: 20110127
  4. PANTOPRAZOLE [Concomitant]
     Indication: GASTROOESOPHAGEAL REFLUX DISEASE
  5. PHENERGAN HCL [Concomitant]
     Indication: ANTIALLERGIC THERAPY
     Dosage: 25 MG, UNK
     Dates: start: 20100901
  6. AZITHROMYCIN [Concomitant]
     Indication: ANTI-INFECTIVE THERAPY
     Dosage: 500 MG, QD
     Route: 042
     Dates: start: 20110127
  7. PANTOPRAZOLE [Concomitant]
     Indication: GASTROOESOPHAGEAL REFLUX DISEASE
     Dosage: 40 MG, BID
     Dates: start: 20100901
  8. VITAMIN K TAB [Concomitant]
     Indication: VITAMIN SUPPLEMENTATION
     Dosage: 10 MG, 3X/W
     Dates: start: 20101101
  9. THYMOGLOBULIN [Suspect]
     Indication: BONE MARROW CONDITIONING REGIMEN
     Dosage: .5 MG/KG, UNK
     Route: 042
     Dates: start: 20100913, end: 20100913
  10. AMBISOME [Concomitant]
     Indication: ANTIFUNGAL PROPHYLAXIS
     Dosage: 100 MG, 3X/W
     Dates: start: 20101105
  11. LORAZEPAM [Concomitant]
     Indication: ANXIETY
     Dosage: 1 MG, TID
     Dates: start: 20101107
  12. MULTI-VITAMIN [Concomitant]
     Indication: VITAMIN SUPPLEMENTATION
     Dosage: 1 DF, QD
     Route: 048
     Dates: start: 20110127
  13. BIOMAG [Concomitant]
     Indication: MINERAL SUPPLEMENTATION
     Dosage: 2 DF, QD
     Route: 048
     Dates: start: 20110127
  14. THYMOGLOBULIN [Suspect]
     Dosage: 2 MG/KG, QD
     Route: 042
     Dates: start: 20100914, end: 20100915
  15. URSODIOL [Concomitant]
     Indication: PROPHYLAXIS
     Dosage: 500 MG, BID
     Dates: start: 20100901
  16. METOCLOPRAMIDE [Concomitant]
     Indication: PROPHYLAXIS OF NAUSEA AND VOMITING
     Dosage: UNK
     Dates: start: 20100901
  17. NIFEDIPINE [Concomitant]
     Indication: HYPERTENSION
     Dosage: 300 MG, QD
     Dates: start: 20101107
  18. ZINC SULFATE [Concomitant]
     Indication: ZINC DEFICIENCY
     Dosage: 2 DF, QD
     Route: 048
     Dates: start: 20110127
  19. BACTRIM [Concomitant]
     Indication: ANTIBIOTIC PROPHYLAXIS
     Dosage: 800 MG, 3X/W
     Dates: start: 20101013
  20. PREDNISOLONE [Concomitant]
     Indication: ACUTE GRAFT VERSUS HOST DISEASE IN INTESTINE
     Dosage: 100 MG, QD
     Route: 048
     Dates: start: 20101101
  21. OXYCODONE HCL [Concomitant]
     Indication: PAIN
     Dosage: UNK
     Route: 048
     Dates: start: 20110129
  22. CYCLIZINE [Concomitant]
     Indication: PROPHYLAXIS OF NAUSEA AND VOMITING
     Dosage: 50 MG, QID
     Dates: start: 20100901
  23. TEMAZEPAM [Concomitant]
     Indication: INSOMNIA
     Dosage: UNK
     Route: 048
     Dates: start: 20101109
  24. ACETAMINOPHEN [Concomitant]
     Indication: PAIN
     Dosage: 1 G, QID
     Dates: start: 20100901
  25. ONDANSETRON [Concomitant]
     Indication: PROPHYLAXIS OF NAUSEA AND VOMITING
     Dosage: 8 MG, BID
     Dates: start: 20101109
  26. PREDNISOLONE [Concomitant]
     Indication: STEROID THERAPY
     Dosage: 50 MG, QD
     Route: 048
     Dates: start: 20110203

REACTIONS (9)
  - INFECTION [None]
  - DIARRHOEA [None]
  - PNEUMONIA [None]
  - DISEASE RECURRENCE [None]
  - CYTOMEGALOVIRUS TEST POSITIVE [None]
  - SEPSIS [None]
  - ACUTE GRAFT VERSUS HOST DISEASE [None]
  - STAPHYLOCOCCAL INFECTION [None]
  - CYTOMEGALOVIRUS COLITIS [None]
